FAERS Safety Report 15232097 (Version 2)
Quarter: 2018Q3

REPORT INFORMATION
  Report Type: Spontaneous
  Country: US (occurrence: US)
  Receive Date: 20180802
  Receipt Date: 20180816
  Transmission Date: 20181010
  Serious: No
  Sender: FDA-Public Use
  Company Number: US-PFIZER INC-2018308849

PATIENT
  Age: 72 Year
  Sex: Female
  Weight: 58 kg

DRUGS (3)
  1. IBRANCE [Suspect]
     Active Substance: PALBOCICLIB
     Dosage: UNK (2ND CYCLE LAST NIGHT)
     Dates: start: 20180809
  2. IBRANCE [Suspect]
     Active Substance: PALBOCICLIB
     Indication: BREAST CANCER METASTATIC
     Dosage: 100 MG, CYCLIC, ONCE A DAY
     Route: 048
     Dates: start: 20180705, end: 20180725
  3. LETROZOLE. [Concomitant]
     Active Substance: LETROZOLE
     Dosage: 2.5 MG, 1X/DAY
     Route: 048

REACTIONS (6)
  - Red blood cell count decreased [Unknown]
  - Nasal discomfort [Unknown]
  - White blood cell count decreased [Recovered/Resolved]
  - Epistaxis [Unknown]
  - Rhinorrhoea [Unknown]
  - Platelet count decreased [Unknown]
